FAERS Safety Report 8156138-9 (Version None)
Quarter: 2012Q1

REPORT INFORMATION
  Report Type: 
  Country: None (occurrence: None)
  Receive Date: 20120222
  Receipt Date: 20120220
  Transmission Date: 20120608
  Serious: Yes (Other)
  Sender: FDA-Public Use
  Company Number: US-AMGEN-USASP2011003098

PATIENT
  Age: 72 Year
  Sex: Female
  Weight: 45.4 kg

DRUGS (7)
  1. NPLATE [Suspect]
     Indication: EOSINOPHILIA
     Dosage: 250 MUG, UNK
     Dates: start: 20090619, end: 20120215
  2. NPLATE [Suspect]
     Indication: MEGAKARYOCYTES
  3. DIGOXIN [Concomitant]
  4. NPLATE [Suspect]
     Indication: THROMBOCYTOPENIA
  5. POTASSIUM CHLORIDE [Concomitant]
  6. NPLATE [Suspect]
     Indication: THROMBOCYTOSIS
  7. THYROID [Concomitant]

REACTIONS (7)
  - CHEST PAIN [None]
  - HAEMATOMA [None]
  - MENTAL IMPAIRMENT [None]
  - PLATELET COUNT ABNORMAL [None]
  - PLATELET COUNT DECREASED [None]
  - FEELING COLD [None]
  - INJECTION SITE PAIN [None]
